FAERS Safety Report 5304827-3 (Version None)
Quarter: 2007Q2

REPORT INFORMATION
  Report Type: 
  Country: None (occurrence: None)
  Receive Date: 20070423
  Receipt Date: 20070117
  Transmission Date: 20071010
  Serious: Yes (Other)
  Sender: FDA-Public Use
  Company Number: US-SANOFI-SYNTHELABO-A03200701206

PATIENT
  Sex: Male

DRUGS (12)
  1. STOOL SOFTNER [Concomitant]
     Dosage: UNK
     Route: 065
  2. VITAMINS B12,C + E [Concomitant]
     Dosage: UNK
     Route: 065
  3. XALATAN [Concomitant]
     Route: 031
  4. LIPITOR [Concomitant]
     Route: 065
  5. ASPIRIN [Concomitant]
     Route: 065
  6. IRON [Concomitant]
     Route: 065
  7. LASIX [Concomitant]
     Route: 065
  8. METOPROLOL SUCCINATE [Concomitant]
     Route: 065
  9. REGULAR INSULIN 70/30 [Concomitant]
     Dosage: 10-15 UNITS UNK
     Route: 065
  10. GLUCOTROL [Concomitant]
     Route: 065
  11. PLAVIX [Suspect]
     Indication: DRUG USE FOR UNKNOWN INDICATION
     Route: 048
     Dates: start: 20010101
  12. METOLOZONE [Concomitant]
     Route: 065

REACTIONS (3)
  - BLISTER [None]
  - PRURITUS GENERALISED [None]
  - SKIN EXFOLIATION [None]
